FAERS Safety Report 16259268 (Version 2)
Quarter: 2019Q2

REPORT INFORMATION
  Report Type: Spontaneous
  Country: JP (occurrence: JP)
  Receive Date: 20190501
  Receipt Date: 20190627
  Transmission Date: 20190711
  Serious: Yes (Other)
  Sender: FDA-Public Use
  Company Number: JP-ROCHE-2308197

PATIENT
  Age: 37 Year
  Sex: Female

DRUGS (11)
  1. CICLOSPORIN [Suspect]
     Active Substance: CYCLOSPORINE
     Indication: URTICARIA CHRONIC
     Dosage: 150 MG, UNK
     Route: 048
  2. XOLAIR [Suspect]
     Active Substance: OMALIZUMAB
     Dosage: UNK
     Route: 058
     Dates: start: 201807
  3. XOLAIR [Suspect]
     Active Substance: OMALIZUMAB
     Dosage: UNK
     Route: 058
     Dates: start: 201808
  4. PRANLUKAST [Concomitant]
     Active Substance: PRANLUKAST
     Indication: URTICARIA CHRONIC
     Dosage: 4 DF, UNK
     Route: 048
  5. DAPSONE. [Concomitant]
     Active Substance: DAPSONE
     Indication: URTICARIA CHRONIC
     Dosage: 75 MG, UNK
     Route: 065
  6. PREDNISOLONE. [Concomitant]
     Active Substance: PREDNISOLONE
     Indication: RHEUMATOID ARTHRITIS
     Dosage: 4 MG, UNK
     Route: 065
  7. PREDNISOLONE. [Concomitant]
     Active Substance: PREDNISOLONE
     Indication: URTICARIA CHRONIC
     Dosage: 15 MG, UNK
     Route: 065
  8. FEXOFENADINE HYDROCHLORIDE. [Concomitant]
     Active Substance: FEXOFENADINE HYDROCHLORIDE
     Indication: URTICARIA CHRONIC
     Dosage: 4 DF, UNK
     Route: 048
  9. XOLAIR [Suspect]
     Active Substance: OMALIZUMAB
     Indication: URTICARIA CHRONIC
     Dosage: UNK
     Route: 058
     Dates: start: 201806
  10. FAMOTIDINE. [Concomitant]
     Active Substance: FAMOTIDINE
     Indication: URTICARIA CHRONIC
     Dosage: UNK
     Route: 065
  11. RUPATADINE FUMARATE [Concomitant]
     Active Substance: RUPATADINE FUMARATE
     Indication: URTICARIA CHRONIC
     Dosage: 2 DF, UNK
     Route: 048

REACTIONS (2)
  - Urticaria [Recovered/Resolved]
  - Rheumatoid arthritis [Not Recovered/Not Resolved]

NARRATIVE: CASE EVENT DATE: 201806
